FAERS Safety Report 10215802 (Version 2)
Quarter: 2015Q3

REPORT INFORMATION
  Report Type: Other
  Country: DK (occurrence: DK)
  Receive Date: 20140602
  Receipt Date: 20150731
  Transmission Date: 20151125
  Serious: Yes (Disabling, Other)
  Sender: FDA-Public Use
  Company Number: DK-20140005

PATIENT
  Age: 49 Year
  Sex: Female

DRUGS (1)
  1. UNKNOWN GADOLINIUM BASED CONTRAST AGENT [Suspect]
     Active Substance: GADOLINIUM
     Dates: start: 20041122

REACTIONS (14)
  - Nephrogenic systemic fibrosis [Not Recovered/Not Resolved]
  - Dysphagia [Not Recovered/Not Resolved]
  - Appetite disorder [Not Recovered/Not Resolved]
  - Joint stabilisation [Not Recovered/Not Resolved]
  - Pain in extremity [Not Recovered/Not Resolved]
  - Onychomycosis [Not Recovered/Not Resolved]
  - Muscle spasms [Not Recovered/Not Resolved]
  - Myalgia [Not Recovered/Not Resolved]
  - Early satiety [None]
  - Muscular weakness [Not Recovered/Not Resolved]
  - Skin hypertrophy [Not Recovered/Not Resolved]
  - Dry skin [Not Recovered/Not Resolved]
  - Arthralgia [Not Recovered/Not Resolved]
  - Mastication disorder [Not Recovered/Not Resolved]
